FAERS Safety Report 5535865-3 (Version None)
Quarter: 2007Q4

REPORT INFORMATION
  Report Type: 
  Country: None (occurrence: None)
  Receive Date: 20071120
  Receipt Date: 20070813
  Transmission Date: 20080405
  Serious: No
  Sender: FDA-Public Use
  Company Number: WAES 0708USA02232

PATIENT
  Age: 83 Year
  Sex: Female

DRUGS (8)
  1. JANUVIA [Suspect]
     Indication: DIABETES MELLITUS
     Dosage: 100 MG/DAILY/PO
     Route: 048
     Dates: start: 20070809
  2. ALTACE [Concomitant]
  3. AMARYL [Concomitant]
  4. CIPROC [Concomitant]
  5. COUMADIN [Concomitant]
  6. DIGOXIN [Concomitant]
  7. NADOLOL [Concomitant]
  8. OMEGA-3 MARINE TRIGLYCERIDES [Concomitant]

REACTIONS (1)
  - OEDEMA PERIPHERAL [None]
